FAERS Safety Report 24656869 (Version 1)
Quarter: 2024Q4

REPORT INFORMATION
  Report Type: Spontaneous
  Country: US (occurrence: US)
  Receive Date: 20241125
  Receipt Date: 20241125
  Transmission Date: 20250115
  Serious: No
  Sender: ROCHE
  Company Number: US-ROCHE-10000136148

PATIENT
  Sex: Male
  Weight: 53.07 kg

DRUGS (2)
  1. XOLAIR [Suspect]
     Active Substance: OMALIZUMAB
     Indication: Food allergy
     Dosage: ONE 300MG AUTO INJECTOR AND ONE 75 MG AUTO INJECTOR
     Route: 058
     Dates: start: 202408
  2. XOLAIR [Suspect]
     Active Substance: OMALIZUMAB

REACTIONS (6)
  - Incorrect disposal of product [Unknown]
  - Accidental underdose [Unknown]
  - Poor quality product administered [Unknown]
  - Needle issue [Unknown]
  - Device issue [Unknown]
  - No adverse event [Unknown]
